FAERS Safety Report 11092117 (Version 2)
Quarter: 2015Q3

REPORT INFORMATION
  Report Type: Spontaneous
  Country: DK (occurrence: DK)
  Receive Date: 20150505
  Receipt Date: 20150809
  Transmission Date: 20151125
  Serious: Yes (Death, Life-Threatening)
  Sender: FDA-Public Use
  Company Number: PHHY2015DK051574

PATIENT
  Age: 81 Year
  Sex: Male
  Weight: 84 kg

DRUGS (10)
  1. HJERDYL [Suspect]
     Active Substance: ASPIRIN
     Indication: ACUTE MYOCARDIAL INFARCTION
     Dosage: DOSE: 300 MG SINGLE DOSE, HEREAFTER 75 MG ONCE DAILY. STRENGTH: 75 MG
     Route: 048
     Dates: start: 20150421
  2. RAPILYSIN /01333701/ [Suspect]
     Active Substance: RETEPLASE
     Indication: ACUTE MYOCARDIAL INFARCTION
     Dosage: 10 IU, (10 IU INTRVENOUS BOLUS 2 TIMES WITH A 30 MINUTE INCREMENT)
     Route: 042
     Dates: start: 20150421
  3. ELTROXIN [Concomitant]
     Active Substance: LEVOTHYROXINE
     Indication: HYPOTHYROIDISM
     Route: 065
     Dates: start: 20120919
  4. RAPILYSIN /01333701/ [Suspect]
     Active Substance: RETEPLASE
     Dosage: DOSIS: 10 IE I.V. BOLUS 2 GANGE MED 30 MINUTTERS INTEVAL, STYRKE: 10 IE
     Route: 042
     Dates: start: 20150421
  5. FRAGMIN [Suspect]
     Active Substance: DALTEPARIN SODIUM
     Indication: ACUTE MYOCARDIAL INFARCTION
     Dosage: ORDINERET DOSIS: 120 IU/KG X 2, MEN USIKKERT HVAD DER ER ADMINISRERET. STYRKE: 10000 IE/ML
     Route: 058
     Dates: start: 20150421, end: 20150422
  6. CORODIL [Concomitant]
     Active Substance: DIPYRIDAMOLE
     Indication: HYPERTENSION
     Dosage: 5 MG, QD
     Route: 065
     Dates: start: 20120927, end: 20150421
  7. HJERDYL [Suspect]
     Active Substance: ASPIRIN
     Dosage: DOSIS: 300 MG ENGANGSDOSIS, HEREFTER 75 MG 1 GANG DAGLIG.  STYRKE: 75 MG
     Route: 048
     Dates: start: 20150421, end: 20150422
  8. CLOPIDOGREL ACTAVIS//CLOPIDOGREL BESYLATE [Suspect]
     Active Substance: CLOPIDOGREL BESILATE
     Indication: ACUTE MYOCARDIAL INFARCTION
     Dosage: (300 MG AS A SINGLE DOSE , THEN 75 MG 1 TIME A DAY)
     Route: 048
     Dates: start: 20150421, end: 20150422
  9. ELTROXIN [Concomitant]
     Active Substance: LEVOTHYROXINE
     Dates: start: 20120919, end: 20150421
  10. AMLODIPINE [Concomitant]
     Active Substance: AMLODIPINE BESYLATE
     Indication: HYPERTENSION
     Dosage: 5 MG, QD
     Route: 065
     Dates: start: 20100107, end: 20150421

REACTIONS (5)
  - Intracranial pressure increased [Fatal]
  - Cardiac arrest [Fatal]
  - Brain herniation [Fatal]
  - Cerebral haemorrhage [Fatal]
  - Brain oedema [Fatal]

NARRATIVE: CASE EVENT DATE: 20150422
